FAERS Safety Report 7558852-2 (Version None)
Quarter: 2011Q2

REPORT INFORMATION
  Report Type: 
  Country: None (occurrence: None)
  Receive Date: 20110613
  Receipt Date: 20110530
  Transmission Date: 20111010
  Serious: Yes (Disabling)
  Sender: FDA-Public Use
  Company Number: OSCN-NO-0912S-0531

PATIENT
  Age: 58 Year
  Sex: Male
  Weight: 73 kg

DRUGS (2)
  1. OMNISCAN [Suspect]
     Indication: RENAL TRANSPLANT
     Dosage: 50 ML, SINGLE DOSE, INTRAVENOUS
     Route: 042
     Dates: start: 20010607, end: 20020607
  2. MEGLUMINE GADOTERATE (DOTAREM) (MEGLUMINE GADOTERATE) [Concomitant]

REACTIONS (5)
  - NEPHROGENIC SYSTEMIC FIBROSIS [None]
  - FATIGUE [None]
  - RENAL IMPAIRMENT [None]
  - SKIN ULCER [None]
  - JOINT CONTRACTURE [None]
